FAERS Safety Report 5648523-1 (Version None)
Quarter: 2008Q1

REPORT INFORMATION
  Report Type: 
  Country: None (occurrence: None)
  Receive Date: 20080131
  Receipt Date: 20071011
  Transmission Date: 20080703
  Serious: No
  Sender: FDA-Public Use
  Company Number: 2005PV000932

PATIENT
  Age: 57 Year
  Sex: Male
  Weight: 106.6 kg

DRUGS (11)
  1. EXENATIDE(EXENATIDE) PEN, DISPOSABLE [Suspect]
     Indication: TYPE 2 DIABETES MELLITUS
     Dosage: 5 UG, 2/D, SUBCUTANEOUS; 10 UG, 2/D, SUBCUTANEOUS
     Route: 058
     Dates: start: 20050101
  2. EXENATIDE(EXENATIDE) PEN, DISPOSABLE [Suspect]
     Indication: TYPE 2 DIABETES MELLITUS
     Dosage: 5 UG, 2/D, SUBCUTANEOUS; 10 UG, 2/D, SUBCUTANEOUS
     Route: 058
     Dates: start: 20050601
  3. EXENATIDE(EXENATIDE) PEN, DISPOSABLE [Suspect]
  4. EXENATIDE (EXENATIDE) [Concomitant]
  5. GLUCOPHAGE [Concomitant]
  6. ACTOS [Concomitant]
  7. ZOCOR [Concomitant]
  8. SYNTHROID [Concomitant]
  9. ACCUPRIL [Concomitant]
  10. HYDROCHLOROTHIAZIDE [Concomitant]
  11. LEVEMIR (INSULIN DETEMIR) [Concomitant]

REACTIONS (4)
  - DECREASED APPETITE [None]
  - INCREASED UPPER AIRWAY SECRETION [None]
  - INFLUENZA LIKE ILLNESS [None]
  - WEIGHT DECREASED [None]
